FAERS Safety Report 16021172 (Version 1)
Quarter: 2019Q1

REPORT INFORMATION
  Report Type: Spontaneous
  Country: CN (occurrence: CN)
  Receive Date: 20190301
  Receipt Date: 20190301
  Transmission Date: 20190418
  Serious: Yes (Hospitalization, Other)
  Sender: FDA-Public Use
  Company Number: CN-BAXTER-2019BAX004062

PATIENT
  Age: 39 Year
  Sex: Female
  Weight: 57 kg

DRUGS (6)
  1. ENDOXAN [Suspect]
     Active Substance: CYCLOPHOSPHAMIDE
     Indication: BREAST CANCER
     Route: 041
     Dates: start: 20190112, end: 20190112
  2. PHARMORUBICIN [Suspect]
     Active Substance: EPIRUBICIN
     Dosage: DOSE REINTRODUCED
     Route: 041
  3. ENDOXAN [Suspect]
     Active Substance: CYCLOPHOSPHAMIDE
     Dosage: DOSE REINTRODUCED
     Route: 041
  4. LIPUSU [Suspect]
     Active Substance: PACLITAXEL
     Indication: BREAST CANCER
     Route: 041
     Dates: start: 20190112, end: 20190112
  5. PHARMORUBICIN [Suspect]
     Active Substance: EPIRUBICIN
     Indication: BREAST CANCER
     Route: 041
     Dates: start: 20190112, end: 20190112
  6. LIPUSU [Suspect]
     Active Substance: PACLITAXEL
     Dosage: DOSE REINTRODUCED
     Route: 041

REACTIONS (8)
  - Lymphadenopathy [Unknown]
  - Herpes virus infection [Recovering/Resolving]
  - Ear infection [Recovering/Resolving]
  - Bone marrow failure [Recovering/Resolving]
  - Oropharyngeal pain [Recovering/Resolving]
  - Stomatitis [Recovering/Resolving]
  - Erythema [Recovering/Resolving]
  - Auricular swelling [Recovering/Resolving]

NARRATIVE: CASE EVENT DATE: 201901
